FAERS Safety Report 9412192 (Version 2)
Quarter: 2013Q3

REPORT INFORMATION
  Report Type: Spontaneous
  Country: US (occurrence: None)
  Receive Date: 20130416
  Receipt Date: 20130815
  Transmission Date: 20140515
  Serious: Yes (Life-Threatening, Hospitalization, Other)
  Sender: FDA-Public Use
  Company Number: ADR-2011-11825

PATIENT
  Sex: Male

DRUGS (4)
  1. BACLOFEN INTRATHECAL [Suspect]
     Indication: POST LAMINECTOMY SYNDROME
  2. FENTANYL [Concomitant]
  3. CLONADINE [Concomitant]
  4. BUPIVACAINE (INTRATHECAL) [Concomitant]

REACTIONS (10)
  - Tooth disorder [None]
  - Drug effect decreased [None]
  - Lumbar vertebral fracture [None]
  - Hypoaesthesia [None]
  - Back pain [None]
  - Musculoskeletal pain [None]
  - Tooth loss [None]
  - Hypoaesthesia [None]
  - Feeling abnormal [None]
  - Unevaluable event [None]
